FAERS Safety Report 10005450 (Version 4)
Quarter: 2014Q3

REPORT INFORMATION
  Report Type: Spontaneous
  Country: JP (occurrence: JP)
  Receive Date: 20140312
  Receipt Date: 20140922
  Transmission Date: 20150326
  Serious: Yes (Death)
  Sender: FDA-Public Use
  Company Number: JP-ELI_LILLY_AND_COMPANY-JP201403001975

PATIENT

DRUGS (20)
  1. HUMALOG [Suspect]
     Active Substance: INSULIN LISPRO
     Dosage: 16 UNK, 6-5-5
     Route: 058
     Dates: start: 20131227, end: 20140106
  2. HUMALOG [Suspect]
     Active Substance: INSULIN LISPRO
     Dosage: 3 IU, TID
     Route: 058
     Dates: start: 20131114, end: 20131129
  3. HUMALOG [Suspect]
     Active Substance: INSULIN LISPRO
     Dosage: 16 UNK, 6-5-5
     Route: 058
     Dates: start: 20131227, end: 20140106
  4. HUMALOG [Suspect]
     Active Substance: INSULIN LISPRO
     Indication: DIABETES MELLITUS
     Dosage: 2 IU, TID
     Route: 064
     Dates: start: 20131109, end: 20131113
  5. HUMALOG [Suspect]
     Active Substance: INSULIN LISPRO
     Indication: DIABETES MELLITUS
     Dosage: 2 IU, TID
     Route: 064
     Dates: start: 20131109, end: 20131113
  6. HUMALOG [Suspect]
     Active Substance: INSULIN LISPRO
     Dosage: 7 IU, TID
     Route: 058
     Dates: start: 20140218
  7. ALDOMET                            /00637902/ [Concomitant]
     Indication: GESTATIONAL HYPERTENSION
     Dosage: UNK
     Route: 064
     Dates: start: 20140218
  8. INAVIR                             /07146202/ [Concomitant]
     Indication: INFLUENZA
     Dosage: UNK
     Route: 064
     Dates: start: 20140221
  9. INAVIR                             /07146202/ [Concomitant]
     Indication: INFLUENZA
     Dosage: UNK
     Route: 064
     Dates: start: 20140221
  10. CALONAL [Concomitant]
     Active Substance: ACETAMINOPHEN
     Indication: INFLUENZA
     Dosage: UNK
     Route: 064
     Dates: start: 20140221
  11. HUMALOG [Suspect]
     Active Substance: INSULIN LISPRO
     Dosage: 3 IU, TID
     Route: 058
     Dates: start: 20131114, end: 20131129
  12. HUMALOG [Suspect]
     Active Substance: INSULIN LISPRO
     Dosage: 19 UNK, 7-6-6
     Route: 058
     Dates: start: 20140107, end: 20140217
  13. ALDOMET                            /00637902/ [Concomitant]
     Indication: GESTATIONAL HYPERTENSION
     Dosage: UNK
     Route: 064
     Dates: start: 20140218
  14. HUMALOG [Suspect]
     Active Substance: INSULIN LISPRO
     Dosage: 19 UNK, 7-6-6
     Route: 058
     Dates: start: 20140107, end: 20140217
  15. HUMALOG [Suspect]
     Active Substance: INSULIN LISPRO
     Dosage: 13 UNK, 5-4-4
     Route: 058
     Dates: start: 20131130, end: 20131212
  16. HUMALOG [Suspect]
     Active Substance: INSULIN LISPRO
     Dosage: 14 UNK, 6-4-4
     Route: 058
     Dates: start: 20131213, end: 20131226
  17. HUMALOG [Suspect]
     Active Substance: INSULIN LISPRO
     Dosage: 7 IU, TID
     Route: 058
     Dates: start: 20140218
  18. HUMALOG [Suspect]
     Active Substance: INSULIN LISPRO
     Dosage: 13 UNK, 5-4-4
     Route: 058
     Dates: start: 20131130, end: 20131212
  19. HUMALOG [Suspect]
     Active Substance: INSULIN LISPRO
     Dosage: 14 UNK, 6-4-4
     Route: 058
     Dates: start: 20131213, end: 20131226
  20. CALONAL [Concomitant]
     Active Substance: ACETAMINOPHEN
     Indication: INFLUENZA
     Dosage: UNK
     Route: 064
     Dates: start: 20140221

REACTIONS (2)
  - Foetal exposure during pregnancy [Not Recovered/Not Resolved]
  - Foetal death [Fatal]

NARRATIVE: CASE EVENT DATE: 20131109
